FAERS Safety Report 8936318 (Version 1)
Quarter: 2012Q4

REPORT INFORMATION
  Report Type: 
  Country: US (occurrence: US)
  Receive Date: 20121130
  Receipt Date: 20121130
  Transmission Date: 20130627
  Serious: Yes (Other)
  Sender: FDA-Public Use
  Company Number: US-PFIZER INC-2012299735

PATIENT
  Age: 82 Year
  Sex: Male
  Weight: 81.63 kg

DRUGS (6)
  1. LYRICA [Suspect]
     Indication: NEUROPATHY PERIPHERAL
     Dosage: 100 mg, 3x/day
     Route: 048
     Dates: start: 2009
  2. TERAZOSIN [Concomitant]
     Dosage: 2 mg, 1x/day
  3. CITALOPRAM [Concomitant]
     Dosage: 20 mg, 1x/day
  4. RANITIDINE [Concomitant]
     Dosage: 150 mg, 2x/day
  5. ALLOPURINOL [Concomitant]
     Dosage: 100 mg, 4x/day
  6. COLCHICINE [Concomitant]
     Dosage: 0.6 mg, 1x/day

REACTIONS (5)
  - Electrocardiogram T wave abnormal [Unknown]
  - Drug dose omission [Unknown]
  - Pain in extremity [Unknown]
  - Rash [Unknown]
  - Dry skin [Unknown]
